FAERS Safety Report 21305562 (Version 1)
Quarter: 2022Q3

REPORT INFORMATION
  Report Type: Spontaneous
  Country: US (occurrence: US)
  Receive Date: 20220908
  Receipt Date: 20220908
  Transmission Date: 20221027
  Serious: Yes (Other)
  Sender: FDA-Public Use
  Company Number: US-BEH-2022149337

PATIENT
  Sex: Female
  Weight: 99.773 kg

DRUGS (2)
  1. PRIVIGEN [Suspect]
     Active Substance: HUMAN IMMUNOGLOBULIN G
     Indication: Chronic inflammatory demyelinating polyradiculoneuropathy
     Dosage: 80 GRAM, Q3W
     Route: 042
     Dates: start: 202205
  2. PRIVIGEN [Suspect]
     Active Substance: HUMAN IMMUNOGLOBULIN G
     Dosage: 10 GRAM, Q3W
     Route: 042
     Dates: start: 202205

REACTIONS (4)
  - Immobile [Unknown]
  - Wheelchair user [Unknown]
  - Weight increased [Unknown]
  - Peripheral swelling [Recovered/Resolved]
